FAERS Safety Report 8033134-3 (Version None)
Quarter: 2012Q1

REPORT INFORMATION
  Report Type: 
  Country: None (occurrence: None)
  Receive Date: 20120110
  Receipt Date: 20111230
  Transmission Date: 20120608
  Serious: Yes (Other)
  Sender: FDA-Public Use
  Company Number: CA-ELI_LILLY_AND_COMPANY-CA201201000605

PATIENT
  Age: 85 Year
  Sex: Female

DRUGS (5)
  1. LEVOTHYROXINE SODIUM [Concomitant]
  2. ASPIRIN [Concomitant]
     Dosage: 81 MG, UNK
  3. IBUPROFEN [Concomitant]
  4. FORTEO [Suspect]
     Indication: OSTEOPOROSIS
     Dosage: 20 UG, QD
     Route: 058
     Dates: start: 20111202
  5. ATIVAN [Concomitant]

REACTIONS (6)
  - HYPERHIDROSIS [None]
  - PELVIC FRACTURE [None]
  - HYPERTENSION [None]
  - ABDOMINAL DISCOMFORT [None]
  - PNEUMONIA [None]
  - CONSTIPATION [None]
